FAERS Safety Report 9871874 (Version 1)
Quarter: 2014Q1

REPORT INFORMATION
  Report Type: Spontaneous
  Country: US (occurrence: US)
  Receive Date: 20140205
  Receipt Date: 20140205
  Transmission Date: 20141002
  Serious: No
  Sender: FDA-Public Use
  Company Number: US-ALLERGAN-1305604US

PATIENT
  Sex: Female

DRUGS (4)
  1. BOTOX COSMETIC [Suspect]
     Indication: SKIN WRINKLING
     Dosage: UNK UNK, SINGLE
     Dates: start: 20130312, end: 20130312
  2. RADIESSE [Suspect]
     Indication: SKIN WRINKLING
     Dosage: UNK
     Dates: start: 20130312, end: 20130312
  3. RADIESSE [Suspect]
     Indication: SKIN WRINKLING
  4. RADIESSE [Suspect]
     Indication: SKIN WRINKLING

REACTIONS (6)
  - Swelling face [Unknown]
  - Swelling face [Unknown]
  - Hypersensitivity [Unknown]
  - Rash [Unknown]
  - Swelling face [Unknown]
  - Swelling face [Unknown]
